FAERS Safety Report 9076957 (Version 4)
Quarter: 2013Q2

REPORT INFORMATION
  Report Type: Spontaneous
  Country: DE (occurrence: DE)
  Receive Date: 20130130
  Receipt Date: 20130403
  Transmission Date: 20140414
  Serious: Yes (Death)
  Sender: FDA-Public Use
  Company Number: DE-SANOFI-AVENTIS-2013SA007674

PATIENT
  Age: 52 Year
  Sex: Male
  Weight: 107 kg

DRUGS (25)
  1. CLEXANE [Suspect]
     Indication: THROMBOSIS PROPHYLAXIS
     Route: 058
     Dates: start: 20130121, end: 20130127
  2. CLEXANE [Suspect]
     Indication: THROMBOSIS PROPHYLAXIS
     Route: 058
     Dates: start: 20130121, end: 20130127
  3. CLEXANE [Suspect]
     Indication: THROMBOSIS PROPHYLAXIS
     Route: 058
     Dates: start: 20130121, end: 20130127
  4. CLEXANE [Suspect]
     Indication: THROMBOSIS PROPHYLAXIS
     Route: 058
     Dates: start: 20130121, end: 20130127
  5. CLEXANE [Suspect]
     Indication: THROMBOSIS PROPHYLAXIS
     Route: 058
     Dates: start: 20130121, end: 20130127
  6. CLEXANE [Suspect]
     Indication: THROMBOSIS PROPHYLAXIS
     Route: 058
     Dates: start: 20130121, end: 20130127
  7. CLEXANE [Suspect]
     Indication: THROMBOSIS PROPHYLAXIS
     Route: 058
     Dates: start: 20130121, end: 20130127
  8. RAMIPRIL/HYDROCHLOROTHIAZIDE [Concomitant]
     Indication: PRODUCT USED FOR UNKNOWN INDICATION
     Dosage: 5 / 25 MG TWICE DAY
     Route: 065
     Dates: start: 20130121, end: 20130122
  9. RAMIPRIL/HYDROCHLOROTHIAZIDE [Concomitant]
     Indication: PRODUCT USED FOR UNKNOWN INDICATION
     Dosage: 5 / 25 MG TWICE DAY
     Route: 065
     Dates: start: 20130126, end: 20130127
  10. SIMVASTATIN [Concomitant]
     Indication: PRODUCT USED FOR UNKNOWN INDICATION
     Route: 065
     Dates: start: 20130121, end: 20130122
  11. SIMVASTATIN [Concomitant]
     Indication: PRODUCT USED FOR UNKNOWN INDICATION
     Route: 065
     Dates: start: 20130126, end: 20130127
  12. METFORMIN HYDROCHLORIDE/SITAGLIPTIN PHOSPHATE [Concomitant]
     Indication: PRODUCT USED FOR UNKNOWN INDICATION
     Dosage: 50 / 1000 TWICE /DAY
     Route: 065
     Dates: start: 20130121, end: 20130122
  13. METFORMIN HYDROCHLORIDE/SITAGLIPTIN PHOSPHATE [Concomitant]
     Indication: PRODUCT USED FOR UNKNOWN INDICATION
     Dosage: 50 / 1000 TWICE /DAY
     Route: 065
     Dates: start: 20130126, end: 20130127
  14. METAMIZOLE [Concomitant]
     Indication: PRODUCT USED FOR UNKNOWN INDICATION
     Route: 065
     Dates: start: 20130121, end: 20130122
  15. METAMIZOLE [Concomitant]
     Indication: PRODUCT USED FOR UNKNOWN INDICATION
     Route: 065
     Dates: start: 20130126, end: 20130127
  16. PANTOPRAZOLE [Concomitant]
     Indication: PRODUCT USED FOR UNKNOWN INDICATION
     Route: 048
     Dates: start: 20130121, end: 20130122
  17. PANTOPRAZOLE [Concomitant]
     Indication: PRODUCT USED FOR UNKNOWN INDICATION
     Route: 042
     Dates: start: 20130124, end: 20130125
  18. PANTOPRAZOLE [Concomitant]
     Indication: PRODUCT USED FOR UNKNOWN INDICATION
     Route: 048
     Dates: start: 20130126, end: 20130127
  19. SOLUTIONS FOR PARENTERAL NUTRITION [Concomitant]
     Indication: PRODUCT USED FOR UNKNOWN INDICATION
     Dates: start: 20130123, end: 20130124
  20. LEVEMIR [Concomitant]
     Indication: PRODUCT USED FOR UNKNOWN INDICATION
     Dates: start: 20130121, end: 20130121
  21. LEVEMIR [Concomitant]
     Indication: PRODUCT USED FOR UNKNOWN INDICATION
     Dates: start: 20130127, end: 20130127
  22. CEFUROXIME [Concomitant]
     Indication: ANTIBIOTIC THERAPY
     Dates: start: 20130122
  23. METRONIDAZOLE [Concomitant]
     Indication: ANTIBIOTIC THERAPY
     Dates: start: 20130122
  24. I.V. SOLUTIONS [Concomitant]
     Indication: FLUID REPLACEMENT
     Dates: start: 20130122, end: 20130122
  25. ALL OTHER THERAPEUTIC PRODUCTS [Concomitant]
     Indication: FLUID REPLACEMENT
     Dates: start: 20130122, end: 20130122

REACTIONS (13)
  - Pulmonary embolism [Fatal]
  - Drug ineffective [Fatal]
  - Colectomy [None]
  - Procedural haemorrhage [None]
  - Respiratory failure [None]
  - Cold sweat [None]
  - Cardiovascular insufficiency [None]
  - Ventricular tachycardia [None]
  - Pericardial effusion [None]
  - Cardiomegaly [None]
  - Drug prescribing error [None]
  - Incorrect dose administered [None]
  - Product quality issue [None]
